FAERS Safety Report 13025369 (Version 1)
Quarter: 2016Q4

REPORT INFORMATION
  Report Type: Spontaneous
  Country: FR (occurrence: FR)
  Receive Date: 20161214
  Receipt Date: 20161214
  Transmission Date: 20170207
  Serious: Yes (Other)
  Sender: FDA-Public Use
  Company Number: FR-ORION CORPORATION ORION PHARMA-TREX2016-2563

PATIENT
  Age: 51 Year
  Sex: Female

DRUGS (3)
  1. METHOTREXATE. [Suspect]
     Active Substance: METHOTREXATE
     Indication: RHEUMATOID ARTHRITIS
     Route: 065
  2. NAPROXEN. [Suspect]
     Active Substance: NAPROXEN
     Indication: MUSCULOSKELETAL PAIN
     Dosage: STRENGTH: 500 MG
     Route: 065
  3. RITUXIMAB [Suspect]
     Active Substance: RITUXIMAB
     Indication: RHEUMATOID ARTHRITIS
     Dosage: TWO 1000 MG INFUSIONS EACH EVERY 6 MONTHS
     Route: 065
     Dates: start: 2011

REACTIONS (5)
  - Drug intolerance [Unknown]
  - Rheumatoid arthritis [Unknown]
  - Hepatitis E [Recovered/Resolved]
  - Alopecia [Unknown]
  - Musculoskeletal pain [Unknown]
